FAERS Safety Report 26160907 (Version 1)
Quarter: 2025Q4

REPORT INFORMATION
  Report Type: Spontaneous
  Country: CN (occurrence: CN)
  Receive Date: 20251216
  Receipt Date: 20251216
  Transmission Date: 20260118
  Serious: Yes (Other)
  Sender: HISUN PHARMACEUTICALS USA INC
  Company Number: CN-Hisun Pharmaceuticals USA Inc.-000964

PATIENT
  Age: 23 Year
  Sex: Female
  Weight: 70 kg

DRUGS (2)
  1. DACTINOMYCIN [Suspect]
     Active Substance: DACTINOMYCIN
     Indication: Malignant hydatidiform mole
     Route: 042
     Dates: start: 20251012, end: 20251012
  2. FLUOROURACIL [Suspect]
     Active Substance: FLUOROURACIL
     Indication: Malignant hydatidiform mole
     Route: 042
     Dates: start: 20251012, end: 20251012

REACTIONS (3)
  - Urticaria [Unknown]
  - Urticarial vasculitis [Unknown]
  - Product use in unapproved indication [Unknown]

NARRATIVE: CASE EVENT DATE: 20251012
